FAERS Safety Report 4446904-5 (Version None)
Quarter: 2004Q3

REPORT INFORMATION
  Report Type: 
  Country: None (occurrence: None)
  Receive Date: 20040908
  Receipt Date: 20040824
  Transmission Date: 20050211
  Serious: Yes (Hospitalization)
  Sender: FDA-Public Use
  Company Number: 2004-BP-07335AU

PATIENT
  Sex: Male

DRUGS (9)
  1. PERSANTIN SR (DIPYRIDAMOLE) [Suspect]
     Indication: TRANSIENT ISCHAEMIC ATTACK
     Dosage: 400 MG (200 MG, 400 MG DAILY) PO
     Route: 048
  2. METHOTREXATE [Suspect]
     Dosage: 10 MG (10 MG DAILY)
     Dates: end: 20030910
  3. NITROFURANTOIN [Suspect]
     Indication: URINARY TRACT DISORDER
     Dosage: 200 MG (200 MG DAILY) PO
     Route: 047
     Dates: start: 20030919, end: 20030926
  4. AUGMENTIN [Suspect]
     Indication: PNEUMONIA
     Dosage: (2 DAILY) PO
     Route: 048
     Dates: start: 20030919, end: 20030926
  5. DIGOXIN [Suspect]
     Indication: ARRHYTHMIA
     Dosage: 125 MCG (125 MCG DAILY) PO
     Route: 048
  6. HALOPERIDOL [Suspect]
     Dosage: PO
     Route: 048
     Dates: end: 20030926
  7. ASPIRIN [Suspect]
     Indication: TRANSIENT ISCHAEMIC ATTACK
     Dosage: 150 MG (150 MG DAILY) PO
     Route: 048
  8. LOSEC (OMEPRAZOLE) [Suspect]
     Indication: PEPTIC ULCER
     Dosage: 20 MG (20 MG DAILY) PO
     Route: 048
  9. FOLIC ACID [Suspect]
     Dosage: 10 MG (10 MG DAILY) PO
     Route: 048
     Dates: end: 20030910

REACTIONS (1)
  - PANCYTOPENIA [None]
